FAERS Safety Report 24760612 (Version 2)
Quarter: 2025Q1

REPORT INFORMATION
  Report Type: Spontaneous
  Country: ZA (occurrence: ZA)
  Receive Date: 20241220
  Receipt Date: 20250203
  Transmission Date: 20250409
  Serious: Yes (Death)
  Sender: CSL BEHRING
  Company Number: ZA-ROCHE-10000149050

PATIENT
  Sex: Male

DRUGS (1)
  1. MIRCERA [Suspect]
     Active Substance: METHOXY POLYETHYLENE GLYCOL-EPOETIN BETA
     Route: 065

REACTIONS (5)
  - Death [Fatal]
  - Blood iron decreased [Unknown]
  - Transferrin decreased [Unknown]
  - Transferrin saturation decreased [Unknown]
  - Serum ferritin increased [Unknown]
